FAERS Safety Report 4386828-5 (Version None)
Quarter: 2004Q2

REPORT INFORMATION
  Report Type: 
  Country: None (occurrence: None)
  Receive Date: 20040622
  Receipt Date: 20040604
  Transmission Date: 20050107
  Serious: Yes (Hospitalization)
  Sender: FDA-Public Use
  Company Number: F01200400337

PATIENT
  Age: 52 Year
  Sex: Female

DRUGS (14)
  1. OXALIPLATIN - SOLUTION - 85 MG/M2 [Suspect]
     Indication: COLORECTAL CANCER
     Dosage: 85 MG/M2 Q2W
     Route: 042
     Dates: start: 20040204, end: 20040204
  2. FLUOROURACIL [Suspect]
     Dosage: 400 MG/M2 BOLUS THEN 2400 MG/M2 AS 46 HOURS INFUSION Q2W
     Route: 042
     Dates: start: 20040204, end: 20040204
  3. LEUCOVORIN - SOLUTION - 350 MG [Suspect]
     Dosage: 350 MG Q2W
     Route: 042
     Dates: start: 20040204, end: 20040204
  4. AVASTIN [Suspect]
     Dosage: 5 MG/KG OVER 30-90 MINUTES IV INFUSION ON DAY 1, Q2W
     Route: 042
     Dates: start: 20040204, end: 20040204
  5. LASIX [Concomitant]
  6. POTASSIUM [Concomitant]
  7. MAGNESIUM [Concomitant]
  8. COUMADIN [Concomitant]
  9. DILAUDID [Concomitant]
  10. COMPAZINE [Concomitant]
  11. LEVAQUIN [Concomitant]
  12. ZOFRAN [Concomitant]
  13. BENADRYL [Concomitant]
  14. ZAROXOLYN [Concomitant]

REACTIONS (33)
  - ASCITES [None]
  - BLOOD ALBUMIN DECREASED [None]
  - BLOOD ALKALINE PHOSPHATASE INCREASED [None]
  - BLOOD CALCIUM DECREASED [None]
  - BLOOD CHLORIDE DECREASED [None]
  - BLOOD FIBRINOGEN INCREASED [None]
  - BLOOD GLUCOSE INCREASED [None]
  - BLOOD POTASSIUM DECREASED [None]
  - BLOOD POTASSIUM INCREASED [None]
  - BLOOD SODIUM DECREASED [None]
  - CHOLELITHIASIS [None]
  - DEHYDRATION [None]
  - DIZZINESS [None]
  - FIBRIN D DIMER INCREASED [None]
  - HAEMANGIOMA OF LIVER [None]
  - HAEMATOCRIT DECREASED [None]
  - HAEMOGLOBIN DECREASED [None]
  - HEART RATE INCREASED [None]
  - HEPATIC LESION [None]
  - HEPATIC MASS [None]
  - HYPOKALAEMIA [None]
  - HYPONATRAEMIA [None]
  - HYPOTENSION [None]
  - INTERNATIONAL NORMALISED RATIO INCREASED [None]
  - LEUKOPENIA [None]
  - NAUSEA [None]
  - NEUTROPENIC SEPSIS [None]
  - PERITONITIS [None]
  - POSTOPERATIVE WOUND COMPLICATION [None]
  - PROTHROMBIN TIME PROLONGED [None]
  - RENAL FAILURE ACUTE [None]
  - SYNCOPE [None]
  - VOMITING [None]
